FAERS Safety Report 7527048-2 (Version None)
Quarter: 2011Q2

REPORT INFORMATION
  Report Type: 
  Country: None (occurrence: None)
  Receive Date: 20110606
  Receipt Date: 20110530
  Transmission Date: 20111010
  Serious: Yes (Hospitalization)
  Sender: FDA-Public Use
  Company Number: IE-ALLERGAN-1106152US

PATIENT
  Age: 3 Year
  Sex: Female
  Weight: 16.9 kg

DRUGS (1)
  1. BOTOX [Suspect]
     Indication: MUSCLE SPASTICITY
     Dosage: 420 UNITS, SINGLE
     Route: 030
     Dates: start: 20101020, end: 20101020

REACTIONS (7)
  - CONSTIPATION [None]
  - FEEDING DISORDER [None]
  - EYELID PTOSIS [None]
  - ASTHENIA [None]
  - OXYGEN SATURATION DECREASED [None]
  - CYANOSIS [None]
  - APNOEA [None]
